FAERS Safety Report 8874674 (Version 1)
Quarter: 2012Q4

REPORT INFORMATION
  Report Type: 
  Country: AR (occurrence: AR)
  Receive Date: 20121031
  Receipt Date: 20121031
  Transmission Date: 20130627
  Serious: Yes (Other)
  Sender: FDA-Public Use
  Company Number: AR-BAYER-2012-022669

PATIENT
  Age: 38 Year
  Sex: Female

DRUGS (1)
  1. DROSPIRENONE + ETHINYL ESTRADIOL [Suspect]
     Indication: CONTRACEPTION
     Dosage: UNK UNK, CONT
     Route: 048
     Dates: end: 20120208

REACTIONS (4)
  - Pregnancy on oral contraceptive [Recovered/Resolved]
  - Abortion spontaneous [None]
  - Haemorrhage in pregnancy [None]
  - Exposure during pregnancy [None]
